FAERS Safety Report 4763505-X (Version None)
Quarter: 2005Q3

REPORT INFORMATION
  Report Type: 
  Country: None (occurrence: None)
  Receive Date: 20050908
  Receipt Date: 20050829
  Transmission Date: 20060218
  Serious: Yes (Hospitalization)
  Sender: FDA-Public Use
  Company Number: JP-JNJFOC-20050806927

PATIENT
  Age: 77 Year
  Sex: Female

DRUGS (5)
  1. ITRIZOLE [Suspect]
     Route: 048
     Dates: start: 20050816, end: 20050822
  2. AMLODIPINE BESYLATE [Concomitant]
  3. PRECIPITATED CALCIUM CARBONATE [Concomitant]
  4. SEVELAMER HYDROCHLORIDE [Concomitant]
  5. RANITIDINE HYDROCHLORIDE [Concomitant]

REACTIONS (1)
  - HYPOGLYCAEMIA [None]
